FAERS Safety Report 20027687 (Version 1)
Quarter: 2021Q4

REPORT INFORMATION
  Report Type: Spontaneous
  Country: JP (occurrence: JP)
  Receive Date: 20211103
  Receipt Date: 20211103
  Transmission Date: 20220303
  Serious: Yes (Other)
  Sender: FDA-Public Use
  Company Number: JP-AMGEN-JPNSP2021168761

PATIENT

DRUGS (2)
  1. OTEZLA [Suspect]
     Active Substance: APREMILAST
     Indication: Behcet^s syndrome
     Dosage: 30 MILLIGRAM (TWO-WEEK-STARTER-PACK)
     Route: 048
  2. OTEZLA [Suspect]
     Active Substance: APREMILAST
     Dosage: UNK (DOSE REDUCED)
     Route: 048

REACTIONS (1)
  - Bipolar disorder [Recovering/Resolving]
